FAERS Safety Report 15021123 (Version 1)
Quarter: 2018Q2

REPORT INFORMATION
  Report Type: Spontaneous
  Country: US (occurrence: US)
  Receive Date: 20180618
  Receipt Date: 20180618
  Transmission Date: 20180711
  Serious: Yes (Other)
  Sender: FDA-Public Use
  Company Number: US-NAPPMUNDI-USA-2018-0143909

PATIENT
  Sex: Male

DRUGS (2)
  1. BUTRANS [Suspect]
     Active Substance: BUPRENORPHINE
     Indication: OESOPHAGEAL ACHALASIA
     Dosage: 40 MCG/HR, WEEKLY
     Route: 062
  2. BUTRANS [Suspect]
     Active Substance: BUPRENORPHINE
     Dosage: 20 MCG/HR, WEEKLY
     Route: 062

REACTIONS (9)
  - Vomiting [Unknown]
  - Off label use [Recovered/Resolved]
  - Chronic obstructive pulmonary disease [Unknown]
  - Drug ineffective [Unknown]
  - Oesophageal achalasia [Unknown]
  - Feeling hot [Unknown]
  - Panic reaction [Unknown]
  - Claustrophobia [Unknown]
  - Dyspnoea [Unknown]
